FAERS Safety Report 25101503 (Version 1)
Quarter: 2025Q1

REPORT INFORMATION
  Report Type: Spontaneous
  Country: US (occurrence: US)
  Receive Date: 20250320
  Receipt Date: 20250320
  Transmission Date: 20250408
  Serious: Yes (Death, Life-Threatening, Hospitalization)
  Sender: JOHNSON AND JOHNSON
  Company Number: US-JNJFOC-20250332408

PATIENT
  Sex: Male

DRUGS (2)
  1. RYBREVANT [Suspect]
     Active Substance: AMIVANTAMAB-VMJW
     Indication: Non-small cell lung cancer
     Route: 065
  2. LAZCLUZE [Suspect]
     Active Substance: LAZERTINIB
     Indication: Non-small cell lung cancer
     Route: 048

REACTIONS (2)
  - Death [Fatal]
  - Syncope [Unknown]
